FAERS Safety Report 4523318-0 (Version None)
Quarter: 2004Q4

REPORT INFORMATION
  Report Type: 
  Country: None (occurrence: None)
  Receive Date: 20041208
  Receipt Date: 20041122
  Transmission Date: 20050328
  Serious: Yes (Hospitalization)
  Sender: FDA-Public Use
  Company Number: 2004BI000112

PATIENT
  Age: 42 Year
  Sex: Female
  Weight: 88.4514 kg

DRUGS (2)
  1. AVONEX [Suspect]
     Indication: MULTIPLE SCLEROSIS
     Dosage: 30 UQ; QW; IM
     Route: 030
     Dates: start: 20031101
  2. PROVIGIL [Concomitant]

REACTIONS (3)
  - BRAIN SCAN ABNORMAL [None]
  - DYSSTASIA [None]
  - FALL [None]
